FAERS Safety Report 7711507 (Version 3)
Quarter: 2013Q4

REPORT INFORMATION
  Report Type: Report from Study
  Country: ZA (occurrence: ZA)
  Receive Date: 20101215
  Receipt Date: 20131223
  Transmission Date: 20140711
  Serious: Yes (Death)
  Sender: FDA-Public Use
  Company Number: ZA-PFIZER INC-2010170438

PATIENT
  Age: 60 Year
  Sex: Female

DRUGS (3)
  1. SUTENT [Suspect]
     Indication: GASTROINTESTINAL STROMAL TUMOUR
  2. PANADO [Concomitant]
     Dosage: UNK
     Dates: start: 20091110
  3. TRAMADOL [Concomitant]
     Dosage: UNK
     Dates: start: 20091110

REACTIONS (1)
  - Death [Fatal]
